FAERS Safety Report 20490087 (Version 3)
Quarter: 2023Q4

REPORT INFORMATION
  Report Type: Report from Study
  Country: KR (occurrence: KR)
  Receive Date: 20220218
  Receipt Date: 20231016
  Transmission Date: 20240110
  Serious: Yes (Hospitalization, Other)
  Sender: FDA-Public Use
  Company Number: KR-TAKEDA-2022TUS011049

PATIENT
  Age: 26 Year
  Sex: Female
  Weight: 52.8 kg

DRUGS (14)
  1. VEDOLIZUMAB [Suspect]
     Active Substance: VEDOLIZUMAB
     Indication: Colitis ulcerative
     Dosage: 300 MILLIGRAM, QD
     Route: 042
     Dates: start: 20211004, end: 20211004
  2. PREDNISOLONE [Concomitant]
     Active Substance: PREDNISOLONE
     Dosage: 25 MILLIGRAM, QD
     Route: 048
     Dates: start: 20211004, end: 20211017
  3. ASACOL [Concomitant]
     Active Substance: MESALAMINE
     Dosage: 2400 MILLIGRAM, BID
     Route: 048
     Dates: start: 20210923, end: 20211017
  4. TIROPRAMIDE [Concomitant]
     Active Substance: TIROPRAMIDE
     Dosage: 100 MILLIGRAM, TID
     Route: 048
     Dates: start: 20211004, end: 20211017
  5. LOPERAMIDE [Concomitant]
     Active Substance: LOPERAMIDE
     Dosage: 2 MILLIGRAM, BID
     Route: 048
     Dates: start: 20211004, end: 20211017
  6. MECKOOL [Concomitant]
     Dosage: 10 MILLIGRAM, QD
     Route: 042
     Dates: start: 20211011, end: 20211011
  7. Ciplus [Concomitant]
     Dosage: 400 MILLIGRAM, BID
     Route: 042
     Dates: start: 20211011, end: 20211011
  8. PROPACETAMOL HYDROCHLORIDE [Concomitant]
     Active Substance: PROPACETAMOL HYDROCHLORIDE
     Dosage: UNK
     Route: 042
     Dates: start: 20211011, end: 20211011
  9. MEPERIDINE HYDROCHLORIDE [Concomitant]
     Active Substance: MEPERIDINE HYDROCHLORIDE
     Dosage: 25 MILLIGRAM
     Route: 042
     Dates: start: 20211011, end: 20211011
  10. PANTOPRAZOLE SODIUM [Concomitant]
     Active Substance: PANTOPRAZOLE SODIUM
     Dosage: 40 MILLIGRAM, QD
     Route: 042
     Dates: start: 20211011, end: 20211011
  11. HYDROCORTISONE SODIUM SUCCINATE [Concomitant]
     Active Substance: HYDROCORTISONE SODIUM SUCCINATE
     Dosage: 100 MILLIGRAM, TID
     Route: 042
     Dates: start: 20211011, end: 20211015
  12. TRAMADOL HYDROCHLORIDE [Concomitant]
     Active Substance: TRAMADOL HYDROCHLORIDE
     Dosage: 50 MILLIGRAM
     Route: 042
     Dates: start: 20211012, end: 20211013
  13. PENIRAMIN [Concomitant]
     Dosage: 40 MILLIGRAM
     Route: 042
     Dates: start: 20211013, end: 20211013
  14. REMICADE [Concomitant]
     Active Substance: INFLIXIMAB
     Dosage: 300 MILLIGRAM, MONTHLY
     Route: 042
     Dates: start: 20211013

REACTIONS (1)
  - Haematochezia [Recovered/Resolved]

NARRATIVE: CASE EVENT DATE: 20211011
